FAERS Safety Report 4758774-6 (Version None)
Quarter: 2005Q3

REPORT INFORMATION
  Report Type: 
  Country: None (occurrence: None)
  Receive Date: 20050831
  Receipt Date: 20050831
  Transmission Date: 20060218
  Serious: Yes (Hospitalization, Other)
  Sender: FDA-Public Use
  Company Number: None

PATIENT
  Sex: Female
  Weight: 51.8 kg

DRUGS (4)
  1. ADRIAMYCIN PFS [Suspect]
     Indication: BREAST CANCER
     Dosage: SEE IMAGE
     Route: 042
     Dates: start: 20050805
  2. CYTOXAN [Suspect]
     Dosage: SEE IMAGE
     Route: 042
     Dates: start: 20050805, end: 20050805
  3. DECADRON [Concomitant]
  4. ATIVAN [Concomitant]

REACTIONS (6)
  - BODY TEMPERATURE INCREASED [None]
  - CONVULSION [None]
  - ENCEPHALITIS VIRAL [None]
  - GRAND MAL CONVULSION [None]
  - INFECTION [None]
  - PNEUMONIA [None]
